FAERS Safety Report 10681757 (Version 1)
Quarter: 2014Q4

REPORT INFORMATION
  Report Type: Spontaneous
  Country: CH (occurrence: CH)
  Receive Date: 20141230
  Receipt Date: 20141230
  Transmission Date: 20150529
  Serious: Yes (Hospitalization)
  Sender: FDA-Public Use
  Company Number: CH-TEVA-531219ISR

PATIENT
  Age: 87 Year
  Sex: Male
  Weight: 74 kg

DRUGS (9)
  1. LASIX [Concomitant]
     Active Substance: FUROSEMIDE
     Indication: CARDIAC FAILURE
     Dosage: 80 MILLIGRAM DAILY;
     Route: 041
     Dates: start: 20120830, end: 20120902
  2. SINTROM [Interacting]
     Active Substance: ACENOCOUMAROL
     Indication: ATRIAL FIBRILLATION
     Dosage: 2 MILLIGRAM DAILY;
     Route: 048
     Dates: start: 20120831, end: 20120831
  3. SINTROM [Interacting]
     Active Substance: ACENOCOUMAROL
     Dosage: 3 MILLIGRAM DAILY;
     Route: 048
     Dates: start: 20120830, end: 20120830
  4. NEPHROTRANS [Concomitant]
     Indication: CHRONIC KIDNEY DISEASE
     Dosage: 1000 MILLIGRAM DAILY; TREATMENT ONGOING AT ADMISSION
     Route: 048
     Dates: end: 20120903
  5. FOLIC ACID. [Concomitant]
     Active Substance: FOLIC ACID
     Indication: FOLATE DEFICIENCY
     Dosage: 5 MILLIGRAM DAILY;
     Route: 048
     Dates: start: 20120831, end: 20121001
  6. BELOC [Concomitant]
     Active Substance: METOPROLOL TARTRATE
     Indication: ESSENTIAL HYPERTENSION
     Dosage: 100 MILLIGRAM DAILY; TREATMENT ALREADY STARTED AT HOME
     Route: 048
  7. VI-DE 3 [Concomitant]
     Dosage: 8 GTT DAILY; ALREADY ONGOING AT ADMISSION. INDICATION UNKNOWN.
     Route: 048
  8. SIMVASTIN-MEPHA [Suspect]
     Active Substance: SIMVASTATIN
     Indication: DYSLIPIDAEMIA
     Dosage: 20 MILLIGRAM DAILY; LONGTERM TREATMENT BEFORE STOP ON 11-SEP-2012
     Route: 048
     Dates: end: 20120911
  9. LISINOPRIL. [Concomitant]
     Active Substance: LISINOPRIL
     Indication: ESSENTIAL HYPERTENSION
     Dosage: 10 MILLIGRAM DAILY; CONTINUING
     Route: 048
     Dates: start: 20120831

REACTIONS (10)
  - Nocturia [Unknown]
  - Condition aggravated [Unknown]
  - Oedema peripheral [Unknown]
  - Haematuria [Recovered/Resolved]
  - Dyspnoea [Unknown]
  - International normalised ratio increased [Recovered/Resolved]
  - Atrial fibrillation [Unknown]
  - Drug interaction [Recovered/Resolved]
  - Orthopnoea [Unknown]
  - Dyspnoea paroxysmal nocturnal [Unknown]

NARRATIVE: CASE EVENT DATE: 2012
